FAERS Safety Report 8673688 (Version 3)
Quarter: 2012Q4

REPORT INFORMATION
  Report Type: 
  Country: NL (occurrence: NL)
  Receive Date: 20120719
  Receipt Date: 20121009
  Transmission Date: 20130627
  Serious: Yes (Hospitalization)
  Sender: FDA-Public Use
  Company Number: NL-PFIZER INC-2012170081

PATIENT
  Age: 52 Year
  Sex: Male

DRUGS (2)
  1. ATORVASTATIN PFIZER [Suspect]
     Dosage: 10 mg, UNK
     Route: 048
  2. COZAAR [Concomitant]
     Indication: HYPERTENSION
     Dosage: 100 mg one time daily
     Route: 048

REACTIONS (2)
  - Dyspnoea [Recovered/Resolved]
  - Hallucination [Recovered/Resolved]
